FAERS Safety Report 9382844 (Version 1)
Quarter: 2013Q3

REPORT INFORMATION
  Report Type: Spontaneous
  Country: FR (occurrence: FR)
  Receive Date: 20130703
  Receipt Date: 20130703
  Transmission Date: 20140515
  Serious: Yes (Life-Threatening, Hospitalization)
  Sender: FDA-Public Use
  Company Number: FR-GLAXOSMITHKLINE-B0902349A

PATIENT
  Age: 66 Year
  Sex: Female

DRUGS (9)
  1. ARIXTRA [Suspect]
     Indication: THROMBOSIS PROPHYLAXIS
     Dosage: 5MG PER DAY
     Route: 058
     Dates: start: 20130605, end: 20130610
  2. KETOPROFEN [Suspect]
     Indication: PRODUCT USED FOR UNKNOWN INDICATION
     Dosage: 75MG PER DAY
     Route: 048
  3. AUGMENTIN IV [Concomitant]
     Dosage: 3G PER DAY
     Route: 042
     Dates: start: 20130604, end: 20130610
  4. SOLUMEDROL [Concomitant]
     Dosage: 160MG PER DAY
     Route: 042
     Dates: start: 20130604, end: 20130610
  5. CLARITYNE [Concomitant]
     Route: 048
     Dates: start: 20130606
  6. SINGULAIR [Concomitant]
     Route: 065
     Dates: start: 20130606
  7. SIMVASTATINE [Concomitant]
     Dosage: 20MG PER DAY
     Route: 065
  8. PARIET [Concomitant]
     Dosage: 10MG PER DAY
     Route: 048
  9. DAFALGAN CODEINE [Concomitant]
     Dosage: 3G PER DAY

REACTIONS (7)
  - Retroperitoneal haematoma [Recovering/Resolving]
  - Muscle haemorrhage [Recovering/Resolving]
  - Haemoglobin decreased [Recovering/Resolving]
  - Abdominal pain [Unknown]
  - Renal failure [Unknown]
  - Bladder stenosis [Unknown]
  - Pyelocaliectasis [Unknown]
